FAERS Safety Report 6792116-X (Version None)
Quarter: 2010Q2

REPORT INFORMATION
  Report Type: 
  Country: None (occurrence: None)
  Receive Date: 20100624
  Receipt Date: 20080723
  Transmission Date: 20101027
  Serious: No
  Sender: FDA-Public Use
  Company Number: US-PFIZER INC-2008061208

PATIENT
  Sex: Female

DRUGS (6)
  1. GEODON [Suspect]
     Indication: RESTLESSNESS
     Dates: start: 20080707
  2. GEODON [Suspect]
     Indication: DEPRESSION
  3. PROZAC [Concomitant]
  4. WELLBUTRIN XL [Concomitant]
  5. PROPRANOLOL [Concomitant]
  6. LORAZEPAM [Concomitant]

REACTIONS (2)
  - BLADDER DISORDER [None]
  - UNEVALUABLE EVENT [None]
